FAERS Safety Report 6196879-6 (Version None)
Quarter: 2009Q2

REPORT INFORMATION
  Report Type: 
  Country: None (occurrence: None)
  Receive Date: 20090518
  Receipt Date: 20090518
  Transmission Date: 20091009
  Serious: Yes (Disabling)
  Sender: FDA-Public Use
  Company Number: None

PATIENT
  Age: 61 Year
  Sex: Female

DRUGS (1)
  1. HYDROXYCHLOROQUINE SULFATE [Suspect]
     Indication: GRANULOMA
     Dosage: 200 MG TWICE DAILY
     Dates: start: 20080829, end: 20090301

REACTIONS (2)
  - RETINAL TEAR [None]
  - RETINOPATHY [None]
